FAERS Safety Report 6529194-9 (Version None)
Quarter: 2010Q1

REPORT INFORMATION
  Report Type: 
  Country: None (occurrence: None)
  Receive Date: 20100107
  Receipt Date: 20091231
  Transmission Date: 20100710
  Serious: Yes (Hospitalization)
  Sender: FDA-Public Use
  Company Number: ES-SANOFI-AVENTIS-2009SA005654

PATIENT
  Age: 76 Year
  Sex: Male

DRUGS (6)
  1. BLINDED THERAPY [Suspect]
     Indication: NON-SMALL CELL LUNG CANCER
     Route: 042
     Dates: start: 20090921, end: 20090921
  2. BLINDED THERAPY [Suspect]
     Route: 042
     Dates: start: 20091103, end: 20091103
  3. BLINDED THERAPY [Suspect]
     Route: 042
     Dates: start: 20091218, end: 20091218
  4. DOCETAXEL [Suspect]
     Indication: NON-SMALL CELL LUNG CANCER
     Route: 042
     Dates: start: 20090921, end: 20090921
  5. DOCETAXEL [Suspect]
     Route: 042
     Dates: start: 20091103, end: 20091103
  6. CORTICOSTEROID NOS [Concomitant]

REACTIONS (4)
  - FEBRILE NEUTROPENIA [None]
  - HEADACHE [None]
  - NEUTROPENIA [None]
  - RESPIRATORY TRACT INFECTION [None]
